FAERS Safety Report 13162099 (Version 1)
Quarter: 2017Q1

REPORT INFORMATION
  Report Type: Spontaneous
  Country: US (occurrence: US)
  Receive Date: 20170130
  Receipt Date: 20170130
  Transmission Date: 20170428
  Serious: No
  Sender: FDA-Public Use
  Company Number: US-PFIZER INC-2017037018

PATIENT
  Sex: Female

DRUGS (1)
  1. XELJANZ XR [Suspect]
     Active Substance: TOFACITINIB CITRATE
     Dosage: 11 MG, UNK

REACTIONS (7)
  - Dizziness [Unknown]
  - Nausea [Unknown]
  - Neck pain [Unknown]
  - Fatigue [Unknown]
  - Tremor [Unknown]
  - Arthropathy [Unknown]
  - Bone pain [Unknown]
